FAERS Safety Report 5979490-9 (Version None)
Quarter: 2008Q4

REPORT INFORMATION
  Report Type: 
  Country: None (occurrence: None)
  Receive Date: 20081126
  Receipt Date: 20081113
  Transmission Date: 20090506
  Serious: Yes (Life-Threatening, Hospitalization)
  Sender: FDA-Public Use
  Company Number: 2008002028

PATIENT
  Age: 55 Year
  Sex: Male

DRUGS (10)
  1. ERLOTINIB (ERLOTINIB) (TABLET) (ERLOTINIB) [Suspect]
     Indication: NON-SMALL CELL LUNG CANCER
     Dosage: (150 MG, QD), ORAL
     Route: 048
     Dates: start: 20080618, end: 20080804
  2. SANDOZ-CALCIUM (CALCIUM GLUBIONATE) [Concomitant]
  3. DEXERYL (OSINEX) [Concomitant]
  4. PREDNISONE TAB [Concomitant]
  5. XANAX [Concomitant]
  6. OMEPRAZOLE [Concomitant]
  7. DOMPERIDONE (DOMPERIDONE) [Concomitant]
  8. VENTOLINE (SALBUTAMOL) [Concomitant]
  9. KETOCONAZOLE [Concomitant]
  10. OXYGEN (OXYGEN) [Concomitant]

REACTIONS (3)
  - ACUTE RESPIRATORY FAILURE [None]
  - DEEP VEIN THROMBOSIS [None]
  - PULMONARY EMBOLISM [None]
